FAERS Safety Report 8294605 (Version 13)
Quarter: 2015Q2

REPORT INFORMATION
  Report Type: Report from Study
  Country: CA (occurrence: CA)
  Receive Date: 20111216
  Receipt Date: 20150528
  Transmission Date: 20150821
  Serious: Yes (Other)
  Sender: FDA-Public Use
  Company Number: PHHY2011CA103237

PATIENT
  Age: 51 Year
  Sex: Female

DRUGS (3)
  1. SANDOSTATIN LAR DEPOT [Suspect]
     Active Substance: OCTREOTIDE ACETATE
     Indication: NEUROENDOCRINE CARCINOMA
     Dosage: 30 MG, EVERY 4 WEEKS
     Route: 030
     Dates: start: 20111125
  2. SANDOSTATIN [Suspect]
     Active Substance: OCTREOTIDE ACETATE
     Indication: NEUROENDOCRINE CARCINOMA
     Route: 058
     Dates: start: 20111122
  3. SANDOSTATIN LAR DEPOT [Suspect]
     Active Substance: OCTREOTIDE ACETATE
     Dosage: 30 MG, EVERY 4 WEEKS
     Route: 030
     Dates: start: 20140522

REACTIONS (32)
  - Diarrhoea [Unknown]
  - Proctalgia [Unknown]
  - Visual impairment [Unknown]
  - Nasopharyngitis [Unknown]
  - Chills [Unknown]
  - Malaise [Unknown]
  - Influenza like illness [Unknown]
  - Fall [Unknown]
  - Vision blurred [Unknown]
  - Productive cough [Unknown]
  - Malignant neoplasm progression [Unknown]
  - Abnormal faeces [Unknown]
  - Peripheral swelling [Unknown]
  - Eye burns [Unknown]
  - Synovial cyst [Unknown]
  - Viral infection [Unknown]
  - Cough [Unknown]
  - Sneezing [Unknown]
  - Rhinorrhoea [Unknown]
  - Oropharyngeal pain [Unknown]
  - Headache [Unknown]
  - Wrong technique in drug usage process [Unknown]
  - Joint swelling [Unknown]
  - Eye disorder [Unknown]
  - Eye irritation [Unknown]
  - Eye pruritus [Unknown]
  - Flatulence [Recovered/Resolved]
  - Faecal incontinence [Unknown]
  - Vitreous floaters [Not Recovered/Not Resolved]
  - Fatigue [Unknown]
  - Nausea [Unknown]
  - Eye inflammation [Not Recovered/Not Resolved]

NARRATIVE: CASE EVENT DATE: 20111125
